FAERS Safety Report 6359133-5 (Version None)
Quarter: 2009Q3

REPORT INFORMATION
  Report Type: 
  Country: None (occurrence: None)
  Receive Date: 20090917
  Receipt Date: 20090910
  Transmission Date: 20100115
  Serious: Yes (Disabling)
  Sender: FDA-Public Use
  Company Number: US-TEVA-209034USA

PATIENT
  Sex: Female

DRUGS (3)
  1. LEUCOVORIN CALCIUM TABLET 5MG [Suspect]
     Indication: COLON CANCER
  2. OXALIPLATIN [Suspect]
     Indication: COLON CANCER
  3. FLUOROURACIL [Suspect]
     Indication: COLON CANCER

REACTIONS (6)
  - COGNITIVE DISORDER [None]
  - DIARRHOEA [None]
  - DRUG TOXICITY [None]
  - NEUTROPENIA [None]
  - STOMATITIS [None]
  - WALKING DISABILITY [None]
